FAERS Safety Report 9392439 (Version 2)
Quarter: 2013Q4

REPORT INFORMATION
  Report Type: Report from Study
  Country: AU (occurrence: AU)
  Receive Date: 20130710
  Receipt Date: 20131111
  Transmission Date: 20140711
  Serious: Yes (Hospitalization)
  Sender: FDA-Public Use
  Company Number: AU-BIOGENIDEC-2013BI061059

PATIENT
  Age: 49 Year
  Sex: Female

DRUGS (5)
  1. TYSABRI [Suspect]
     Indication: RELAPSING-REMITTING MULTIPLE SCLEROSIS
     Route: 042
     Dates: start: 20090127
  2. DESVENLAFAXINE [Concomitant]
     Indication: DEPRESSION
  3. TRAMADOL [Concomitant]
     Indication: PAIN
     Dates: start: 20071129
  4. LEVLEN ED [Concomitant]
     Indication: CONTRACEPTION
     Dates: start: 20060401
  5. CALTRATE PLUS [Concomitant]
     Indication: OSTEOPOROSIS PROPHYLAXIS
     Dates: start: 20120401

REACTIONS (1)
  - Deep vein thrombosis [Recovered/Resolved with Sequelae]
